FAERS Safety Report 4808849-8 (Version None)
Quarter: 2005Q4

REPORT INFORMATION
  Report Type: 
  Country: None (occurrence: None)
  Receive Date: 20051021
  Receipt Date: 20021014
  Transmission Date: 20060501
  Serious: No
  Sender: FDA-Public Use
  Company Number: DE_021009836

PATIENT
  Age: 51 Year
  Sex: Female

DRUGS (2)
  1. ZYPREXA [Suspect]
     Indication: PSYCHOTIC DISORDER
     Dates: start: 20020901
  2. ANTIDEPRESSANT [Concomitant]

REACTIONS (1)
  - THROMBOPHLEBITIS [None]
